FAERS Safety Report 20913720 (Version 2)
Quarter: 2022Q3

REPORT INFORMATION
  Report Type: Other
  Country: IT (occurrence: IT)
  Receive Date: 20220604
  Receipt Date: 20220721
  Transmission Date: 20221027
  Serious: Yes (Other)
  Sender: FDA-Public Use
  Company Number: IT-CELLTRION INC.-2022IT008049

PATIENT

DRUGS (12)
  1. RITUXIMAB [Suspect]
     Active Substance: RITUXIMAB
     Indication: B-cell lymphoma
     Dosage: UNK
     Dates: start: 202010, end: 202103
  2. BENDAMUSTINE [Suspect]
     Active Substance: BENDAMUSTINE
     Indication: B-cell lymphoma
     Dosage: UNK
     Dates: start: 202108, end: 202110
  3. POLATUZUMAB VEDOTIN [Suspect]
     Active Substance: POLATUZUMAB VEDOTIN
     Indication: B-cell lymphoma
     Dosage: UNK
     Dates: start: 202108, end: 202110
  4. PREDNISONE [Concomitant]
     Active Substance: PREDNISONE
     Indication: B-cell lymphoma
     Dosage: UNK
     Dates: start: 202010, end: 202103
  5. DOXORUBICIN [Concomitant]
     Active Substance: DOXORUBICIN
     Indication: B-cell lymphoma
     Dosage: UNK
     Dates: start: 202010, end: 202103
  6. DEXAMETHASONE [Concomitant]
     Active Substance: DEXAMETHASONE
     Indication: B-cell lymphoma
     Dosage: UNK
     Dates: start: 202104, end: 202105
  7. METHYLPREDNISOLONE [Concomitant]
     Active Substance: METHYLPREDNISOLONE
     Indication: B-cell lymphoma
     Dosage: UNK
     Dates: start: 202106, end: 202107
  8. CYCLOPHOSPHAMIDE [Concomitant]
     Active Substance: CYCLOPHOSPHAMIDE
     Indication: B-cell lymphoma
     Dosage: UNK
     Dates: start: 202010, end: 202103
  9. ONCOVIN [Concomitant]
     Active Substance: VINCRISTINE SULFATE
     Indication: B-cell lymphoma
     Dosage: UNK
     Dates: start: 202010, end: 202103
  10. ETOPOSIDE [Concomitant]
     Active Substance: ETOPOSIDE
     Indication: B-cell lymphoma
     Dosage: UNK
     Dates: start: 202106, end: 202107
  11. CYTARABINE [Concomitant]
     Active Substance: CYTARABINE
     Indication: B-cell lymphoma
     Dosage: UNK
     Dates: start: 202104, end: 202105
  12. CISPLATIN [Concomitant]
     Active Substance: CISPLATIN
     Indication: B-cell lymphoma
     Dosage: UNK
     Dates: start: 202104, end: 202105

REACTIONS (3)
  - Pancytopenia [Unknown]
  - Disease progression [Unknown]
  - Asthenia [Unknown]
